FAERS Safety Report 9800039 (Version 1)
Quarter: 2014Q1

REPORT INFORMATION
  Report Type: Spontaneous
  Country: US (occurrence: US)
  Receive Date: 20140106
  Receipt Date: 20140106
  Transmission Date: 20141002
  Serious: No
  Sender: FDA-Public Use
  Company Number: US-GILEAD-2010-0032114

PATIENT
  Age: 58 Year
  Sex: Female
  Weight: 95.25 kg

DRUGS (11)
  1. LETAIRIS [Suspect]
     Indication: PULMONARY ARTERIAL HYPERTENSION
     Route: 048
     Dates: start: 20100707
  2. TYVASO [Concomitant]
  3. LANOXIN [Concomitant]
  4. SPIRONOLACTONE [Concomitant]
  5. FUROSEMIDE [Concomitant]
  6. OXYGEN [Concomitant]
  7. BENZONATE [Concomitant]
  8. NEXIUM [Concomitant]
  9. TYLENOL EX [Concomitant]
  10. SYNTHROID [Concomitant]
  11. ALPHAGAN [Concomitant]

REACTIONS (1)
  - Platelet count decreased [Unknown]
